FAERS Safety Report 19482224 (Version 1)
Quarter: 2021Q3

REPORT INFORMATION
  Report Type: Spontaneous
  Country: US (occurrence: US)
  Receive Date: 20210701
  Receipt Date: 20210701
  Transmission Date: 20211014
  Serious: No
  Sender: FDA-Public Use
  Company Number: US-BAYER-2021-165308

PATIENT
  Age: 63 Year
  Sex: Male
  Weight: 79.83 kg

DRUGS (6)
  1. ALEVE [Suspect]
     Active Substance: NAPROXEN SODIUM
     Indication: HEADACHE
  2. B?COMPLEX [VITAMIN B NOS] [Concomitant]
     Active Substance: VITAMINS
  3. LINZESS [Concomitant]
     Active Substance: LINACLOTIDE
     Dosage: 290 MG
  4. FOLIC ACID. [Concomitant]
     Active Substance: FOLIC ACID
     Dosage: 2100 MG
  5. ALEVE [Suspect]
     Active Substance: NAPROXEN SODIUM
     Indication: PAIN
     Dosage: A HALF OF A TABLET OR ONE TABLET AT THE MOST
  6. VITAMIN D [VITAMIN D NOS] [Concomitant]
     Active Substance: VITAMIN D NOS
     Dosage: 2000 IU

REACTIONS (2)
  - Gastrooesophageal reflux disease [Unknown]
  - Incorrect dose administered [Unknown]
